FAERS Safety Report 6155847-0 (Version None)
Quarter: 2009Q2

REPORT INFORMATION
  Report Type: 
  Country: None (occurrence: None)
  Receive Date: 20090415
  Receipt Date: 20090407
  Transmission Date: 20091009
  Serious: Yes (Other)
  Sender: FDA-Public Use
  Company Number: DE-AMGEN-US342520

PATIENT
  Age: 62 Year
  Sex: Female

DRUGS (3)
  1. ENBREL [Suspect]
     Indication: PSORIATIC ARTHROPATHY
     Route: 058
     Dates: start: 20090320, end: 20090401
  2. OPIPRAMOL [Concomitant]
     Dosage: UNKNOWN
     Route: 048
     Dates: start: 20090201, end: 20090401
  3. IBUPROFEN [Concomitant]
     Dosage: 600 MG 1-2 TIMES PER DAY
     Route: 048
     Dates: end: 20090401

REACTIONS (4)
  - ALANINE AMINOTRANSFERASE INCREASED [None]
  - ASPARTATE AMINOTRANSFERASE INCREASED [None]
  - CONCOMITANT DISEASE PROGRESSION [None]
  - GAMMA-GLUTAMYLTRANSFERASE INCREASED [None]
